FAERS Safety Report 21782805 (Version 2)
Quarter: 2023Q1

REPORT INFORMATION
  Report Type: Spontaneous
  Country: TW (occurrence: TW)
  Receive Date: 20221227
  Receipt Date: 20230201
  Transmission Date: 20230418
  Serious: Yes (Hospitalization)
  Sender: FDA-Public Use
  Company Number: TW-CHUGAI-2022051310

PATIENT
  Age: 13 Year
  Sex: Male

DRUGS (1)
  1. HEMLIBRA [Suspect]
     Active Substance: EMICIZUMAB-KXWH
     Indication: Haemophilia A with anti factor VIII
     Dosage: UNK
     Route: 058

REACTIONS (5)
  - Seizure [Recovered/Resolved]
  - Haemorrhage [Recovered/Resolved]
  - Haematuria [Recovered/Resolved]
  - Ligament sprain [Recovered/Resolved]
  - Injury [Recovered/Resolved]
